FAERS Safety Report 6091546-1 (Version None)
Quarter: 2009Q1

REPORT INFORMATION
  Report Type: 
  Country: None (occurrence: None)
  Receive Date: 20090219
  Receipt Date: 20090112
  Transmission Date: 20090719
  Serious: No
  Sender: FDA-Public Use
  Company Number: WAES 0901USA01305

PATIENT
  Age: 48 Year
  Sex: Female

DRUGS (4)
  1. JANUVIA [Suspect]
     Indication: TYPE 1 DIABETES MELLITUS
     Dosage: 100 MG/DAILY/PO
     Route: 048
     Dates: start: 20080601, end: 20090110
  2. HUMALOG [Concomitant]
  3. INSULIN [Concomitant]
  4. PENICILLIN [Concomitant]

REACTIONS (5)
  - BLOOD CHOLESTEROL INCREASED [None]
  - BRONCHITIS [None]
  - LUNG INJURY [None]
  - OFF LABEL USE [None]
  - RENAL INJURY [None]
